FAERS Safety Report 10084894 (Version 1)
Quarter: 2014Q2

REPORT INFORMATION
  Report Type: Spontaneous
  Country: FR (occurrence: FR)
  Receive Date: 20140417
  Receipt Date: 20140417
  Transmission Date: 20141212
  Serious: Yes (Hospitalization)
  Sender: FDA-Public Use
  Company Number: FR-ASTRAZENECA-2014SE25511

PATIENT
  Age: 32 Year
  Sex: Female

DRUGS (17)
  1. ENTOCORT [Suspect]
     Route: 048
     Dates: end: 20140228
  2. HUMIRA [Suspect]
     Indication: PSORIASIS
     Route: 058
     Dates: end: 2011
  3. HUMIRA [Suspect]
     Indication: BACK PAIN
     Route: 058
     Dates: end: 2011
  4. HUMIRA [Suspect]
     Indication: PSORIASIS
     Route: 058
     Dates: start: 201111
  5. HUMIRA [Suspect]
     Indication: BACK PAIN
     Route: 058
     Dates: start: 201111
  6. HUMIRA [Suspect]
     Indication: PSORIASIS
     Route: 058
     Dates: start: 201311, end: 201403
  7. HUMIRA [Suspect]
     Indication: BACK PAIN
     Route: 058
     Dates: start: 201311, end: 201403
  8. TOLEXINE [Suspect]
     Indication: ACNE
     Route: 048
     Dates: start: 20131118
  9. PYLERA [Suspect]
     Indication: HELICOBACTER GASTRITIS
     Route: 048
     Dates: start: 20140207, end: 20140217
  10. ZELITREX [Suspect]
     Indication: ORAL HERPES
     Route: 048
     Dates: start: 20140220
  11. COLCHICINE [Suspect]
     Indication: APHTHOUS STOMATITIS
     Route: 048
     Dates: start: 20140220, end: 20140224
  12. NOCTAMIDE [Concomitant]
  13. PILOCARPINE [Concomitant]
  14. PLAQUENIL [Concomitant]
     Indication: CUTANEOUS LUPUS ERYTHEMATOSUS
  15. INEXIUM [Concomitant]
  16. LYRICA [Concomitant]
  17. SULFARLEM [Concomitant]

REACTIONS (6)
  - Clostridium difficile colitis [Recovered/Resolved]
  - Aphthous stomatitis [Unknown]
  - Helicobacter gastritis [Unknown]
  - Herpes simplex [Unknown]
  - Sapovirus test positive [Unknown]
  - Acne [Unknown]
